FAERS Safety Report 24532784 (Version 1)
Quarter: 2024Q4

REPORT INFORMATION
  Report Type: Spontaneous
  Country: US (occurrence: US)
  Receive Date: 20241022
  Receipt Date: 20241022
  Transmission Date: 20250114
  Serious: No
  Sender: LEO PHARM
  Company Number: US-LEO Pharma-374359

PATIENT
  Age: 19 Year
  Sex: Female

DRUGS (4)
  1. TACROLIMUS [Suspect]
     Active Substance: TACROLIMUS
     Indication: Graft versus host disease
     Dosage: TACROLIMUS0.1% OINTMENT
  2. PREDNISONE [Concomitant]
     Active Substance: PREDNISONE
     Indication: Graft versus host disease
  3. CLOBETASOL [Concomitant]
     Active Substance: CLOBETASOL
     Indication: Graft versus host disease
     Dosage: CLOBETASOL 0.05% OINTMENT,
  4. RUXOLITINIB [Concomitant]
     Active Substance: RUXOLITINIB
     Indication: Graft versus host disease

REACTIONS (2)
  - Product use in unapproved indication [Recovered/Resolved]
  - Eczema [Recovered/Resolved]
